FAERS Safety Report 20866395 (Version 1)
Quarter: 2022Q2

REPORT INFORMATION
  Report Type: Other
  Country: US (occurrence: None)
  Receive Date: 20220524
  Receipt Date: 20220524
  Transmission Date: 20220720
  Serious: Yes (Other)
  Sender: FDA-Public Use
  Company Number: US-ROCHE-3102388

PATIENT
  Age: 54 Year
  Sex: Female
  Weight: 78.088 kg

DRUGS (2)
  1. OCREVUS [Suspect]
     Active Substance: OCRELIZUMAB
     Indication: Relapsing multiple sclerosis
     Dosage: 300MG IV DAY 01 AND DAY 15,600MG IV EVERY 06 MONTHS PER MD APPROVAL
     Route: 042
     Dates: start: 2020
  2. TECFIDERA [Concomitant]
     Active Substance: DIMETHYL FUMARATE

REACTIONS (2)
  - Pneumonia [Recovered/Resolved]
  - Chest pain [Recovering/Resolving]

NARRATIVE: CASE EVENT DATE: 20220503
